FAERS Safety Report 6298838-1 (Version None)
Quarter: 2009Q3

REPORT INFORMATION
  Report Type: 
  Country: None (occurrence: None)
  Receive Date: 20090806
  Receipt Date: 20090724
  Transmission Date: 20100115
  Serious: Yes (Death)
  Sender: FDA-Public Use
  Company Number: JP-PFIZER INC-2009240823

PATIENT
  Age: 3 Day

DRUGS (30)
  1. SILDENAFIL CITRATE [Suspect]
     Indication: PERSISTENT FOETAL CIRCULATION
     Dosage: 8 MG, 5 TIMES A DAY
     Route: 048
     Dates: start: 20090704, end: 20090706
  2. ECOLICIN ^CHAUVIN^ [Concomitant]
     Dosage: UNK
     Route: 031
     Dates: start: 20090702, end: 20090702
  3. SAHNE [Concomitant]
     Dosage: UNK
     Route: 061
     Dates: start: 20090702, end: 20090702
  4. SODIUM CHLORIDE [Concomitant]
     Dosage: UNK
     Dates: start: 20090702, end: 20090705
  5. KAYTWO N [Concomitant]
     Dosage: UNK
     Route: 042
     Dates: start: 20090702, end: 20090702
  6. GLUCOSE [Concomitant]
     Dosage: UNK
     Route: 042
     Dates: start: 20090702
  7. MULTIPLE VITAMINS [Concomitant]
     Dosage: UNK
     Route: 042
     Dates: start: 20090702
  8. CALCICOL [Concomitant]
     Dosage: UNK
     Route: 042
     Dates: start: 20090702
  9. SOLU-CORTEF [Concomitant]
     Dosage: UNK
     Dates: start: 20090702, end: 20090705
  10. HEPARIN SODIUM [Concomitant]
     Dosage: UNK
     Dates: start: 20090702
  11. VECURONIUM BROMIDE [Concomitant]
     Dosage: UNK
     Route: 042
     Dates: start: 20090702, end: 20090705
  12. MORPHINE HYDROCHLORIDE [Concomitant]
     Dosage: UNK
     Dates: start: 20090702
  13. GLYCERIN [Concomitant]
     Dosage: UNK
     Route: 054
     Dates: start: 20090702, end: 20090702
  14. PALUX [Concomitant]
     Dosage: UNK
     Dates: start: 20090703, end: 20090703
  15. PHYSIO 70 [Concomitant]
     Dosage: UNK
     Route: 042
     Dates: start: 20090703
  16. DOBUTREX [Concomitant]
     Dosage: UNK
     Route: 042
     Dates: start: 20090703
  17. DOMININ [Concomitant]
     Dosage: UNK
     Route: 042
     Dates: start: 20090703
  18. MEYLON [Concomitant]
     Dosage: UNK
     Route: 042
     Dates: start: 20090703
  19. MIDAZOLAM [Concomitant]
     Dosage: UNK
     Dates: start: 20090703
  20. FRESH FROZEN PLASMA [Concomitant]
     Dosage: UNK
     Route: 042
     Dates: start: 20090703
  21. RED BLOOD CELLS, CONCENTRATED [Concomitant]
     Dosage: UNK
     Route: 042
     Dates: start: 20090703, end: 20090703
  22. LUNG SURFACTANTS [Concomitant]
     Dosage: UNK
     Route: 055
     Dates: start: 20090704, end: 20090704
  23. XYLOCAINE [Concomitant]
     Dosage: UNK
     Dates: start: 20090704, end: 20090704
  24. SOLVENTS + DILUTING AGENTS,INC IRRIGAT SOL [Concomitant]
     Dosage: UNK
     Route: 042
     Dates: start: 20090704, end: 20090705
  25. FRAGMIN [Concomitant]
     Dosage: UNK
     Route: 042
     Dates: start: 20090704
  26. FLOLAN [Concomitant]
     Dosage: UNK
     Route: 042
     Dates: start: 20090704, end: 20090705
  27. DECADRON [Concomitant]
     Dosage: UNK
     Dates: start: 20090704, end: 20090705
  28. PETHILORFAN [Concomitant]
     Dosage: UNK
     Dates: start: 20090705, end: 20090705
  29. NITROGLYCERIN [Concomitant]
     Dosage: UNK
     Route: 042
     Dates: start: 20090706
  30. BOSMIN [Concomitant]
     Dosage: UNK
     Dates: start: 20090706

REACTIONS (1)
  - PERSISTENT FOETAL CIRCULATION [None]
